FAERS Safety Report 25858418 (Version 2)
Quarter: 2025Q4

REPORT INFORMATION
  Report Type: Spontaneous
  Country: JP (occurrence: JP)
  Receive Date: 20250929
  Receipt Date: 20251009
  Transmission Date: 20260118
  Serious: Yes (Hospitalization)
  Sender: NOVARTIS
  Company Number: JP-002147023-NVSJ2025JP009610

PATIENT
  Age: 80 Year
  Sex: Male

DRUGS (1)
  1. ENTRESTO [Suspect]
     Active Substance: SACUBITRIL\VALSARTAN
     Indication: Hypertension
     Dosage: 200 MG, QD
     Route: 048
     Dates: start: 20240125, end: 202508

REACTIONS (3)
  - Parkinson^s disease [Unknown]
  - Dysphagia [Not Recovered/Not Resolved]
  - Concomitant disease progression [Unknown]

NARRATIVE: CASE EVENT DATE: 20250801
